FAERS Safety Report 18760893 (Version 2)
Quarter: 2021Q1

REPORT INFORMATION
  Report Type: Spontaneous
  Country: US (occurrence: US)
  Receive Date: 20210120
  Receipt Date: 20210315
  Transmission Date: 20210419
  Serious: Yes (Life-Threatening, Hospitalization)
  Sender: FDA-Public Use
  Company Number: US-DRREDDYS-USA/USA/21/0131156

PATIENT
  Age: 14 Year
  Sex: Male

DRUGS (8)
  1. DOBUTAMINE HYDROCHLORIDE. [Suspect]
     Active Substance: DOBUTAMINE HYDROCHLORIDE
     Indication: VENTRICULAR FIBRILLATION
  2. SEVOFLURANE. [Concomitant]
     Active Substance: SEVOFLURANE
     Indication: ANAESTHESIA
  3. EPINEPHRINE. [Suspect]
     Active Substance: EPINEPHRINE
     Indication: VENTRICULAR FIBRILLATION
     Route: 040
  4. EPINEPHRINE. [Suspect]
     Active Substance: EPINEPHRINE
     Route: 041
  5. AMIODARONE [Suspect]
     Active Substance: AMIODARONE
     Indication: VENTRICULAR FIBRILLATION
     Route: 040
  6. VASOPRESSIN. [Suspect]
     Active Substance: VASOPRESSIN
     Indication: VENTRICULAR FIBRILLATION
     Route: 041
  7. FENTANYL CITRATE. [Concomitant]
     Active Substance: FENTANYL CITRATE
     Indication: ANAESTHESIA
  8. VECURONIUM [Concomitant]
     Active Substance: VECURONIUM BROMIDE
     Indication: HYPOTONIA

REACTIONS (1)
  - Drug ineffective [Unknown]
